FAERS Safety Report 11862235 (Version 1)
Quarter: 2015Q4

REPORT INFORMATION
  Report Type: Spontaneous
  Country: US (occurrence: None)
  Receive Date: 20151222
  Receipt Date: 20151222
  Transmission Date: 20160305
  Serious: No
  Sender: FDA-Public Use
  Company Number: None

PATIENT
  Age: 63 Year
  Sex: Female

DRUGS (1)
  1. COPAXONE [Suspect]
     Active Substance: GLATIRAMER ACETATE
     Route: 058
     Dates: start: 20120724, end: 20151218

REACTIONS (4)
  - Flushing [None]
  - Vertigo [None]
  - Dyspnoea [None]
  - Palpitations [None]

NARRATIVE: CASE EVENT DATE: 20151210
